FAERS Safety Report 8840078 (Version 1)
Quarter: 2012Q4

REPORT INFORMATION
  Report Type: Spontaneous
  Country: US (occurrence: None)
  Receive Date: 20121011
  Receipt Date: 20121011
  Transmission Date: 20130627
  Serious: Yes (Death)
  Sender: FDA-Public Use
  Company Number: FK201203011

PATIENT
  Age: 42 None
  Sex: Female

DRUGS (2)
  1. PROPOFOL [Suspect]
     Indication: SEDATION
  2. N-ACETYLCYSTEINE (-ACETYLCYSTEINE) [Concomitant]

REACTIONS (5)
  - Metabolic acidosis [None]
  - Hypotension [None]
  - Cardiac arrest [None]
  - Multi-organ failure [None]
  - Propofol infusion syndrome [None]
